FAERS Safety Report 8303696-7 (Version None)
Quarter: 2012Q2

REPORT INFORMATION
  Report Type: 
  Country: None (occurrence: None)
  Receive Date: 20120418
  Receipt Date: 20120403
  Transmission Date: 20120825
  Serious: Yes (Other)
  Sender: FDA-Public Use
  Company Number: FR-20120075

PATIENT
  Age: 55 Year
  Sex: Male

DRUGS (1)
  1. HEXABRIX 320 (IOXAGLIC ACID), 11HX023C [Suspect]
     Indication: ARTERIOGRAM CORONARY
     Dosage: UNK (1 IN 1 TOTAL)
     Route: 042
     Dates: start: 20120319, end: 20120319

REACTIONS (11)
  - TONGUE OEDEMA [None]
  - CHILLS [None]
  - DRY MOUTH [None]
  - ANAPHYLACTOID REACTION [None]
  - DYSPNOEA [None]
  - PARAESTHESIA [None]
  - RASH [None]
  - FEELING COLD [None]
  - NO REACTION ON PREVIOUS EXPOSURE TO DRUG [None]
  - FEELING HOT [None]
  - BLOOD IMMUNOGLOBULIN E INCREASED [None]
